FAERS Safety Report 7699928-9 (Version None)
Quarter: 2011Q3

REPORT INFORMATION
  Report Type: 
  Country: None (occurrence: None)
  Receive Date: 20110822
  Receipt Date: 20110808
  Transmission Date: 20111222
  Serious: Yes (Other)
  Sender: FDA-Public Use
  Company Number: FR-JNJFOC-20110808256

PATIENT

DRUGS (3)
  1. DOXORUBICIN HYDROCHLORIDE [Suspect]
     Indication: METASTATIC RENAL CELL CARCINOMA
     Route: 042
  2. NEUPOGEN [Concomitant]
     Indication: METASTATIC RENAL CELL CARCINOMA
     Route: 065
  3. GEMCITABINE [Suspect]
     Indication: METASTATIC RENAL CELL CARCINOMA
     Route: 065

REACTIONS (3)
  - NAUSEA [None]
  - OFF LABEL USE [None]
  - RENAL FAILURE ACUTE [None]
